FAERS Safety Report 7869293-2 (Version None)
Quarter: 2011Q4

REPORT INFORMATION
  Report Type: 
  Country: None (occurrence: None)
  Receive Date: 20111028
  Receipt Date: 20101230
  Transmission Date: 20120403
  Serious: No
  Sender: FDA-Public Use
  Company Number: US-AMGEN-USASP2010012442

PATIENT
  Sex: Female

DRUGS (18)
  1. ZYRTEC PLUS [Concomitant]
     Dosage: 10 MG, UNK
  2. XOPENEX HFA [Concomitant]
  3. FLEXERIL [Concomitant]
     Dosage: 5 MG, UNK
  4. WELLBUTRIN [Concomitant]
     Dosage: 75 MG, UNK
  5. AMPHETAMINE AND DEXTROAMPHETAMINE SALTS [Concomitant]
     Dosage: 10 MG, UNK
  6. TRIAMTERENE AND HYDROCHLOROTHIAZIDE [Concomitant]
     Dosage: UNK
  7. FISH OIL [Concomitant]
  8. ENBREL [Suspect]
     Indication: PRODUCT USED FOR UNKNOWN INDICATION
     Dosage: 50 MG, QWK
  9. TOPROL-XL [Concomitant]
     Dosage: 25 MG, UNK
  10. ESTRADIOL [Concomitant]
     Dosage: .5 MG, UNK
  11. CHROMIUM CHLORIDE [Concomitant]
     Dosage: 1 MG, UNK
  12. KLONOPIN [Concomitant]
     Dosage: .5 MG, UNK
  13. TRAMADOL HCL [Concomitant]
     Dosage: 50 MG, UNK
  14. CLONIDINE [Concomitant]
     Dosage: .1 MG, UNK
  15. MULTIVITAMIN                       /00097801/ [Concomitant]
  16. TRAZODONE HYDROCHLORIDE [Concomitant]
     Dosage: 50 MG, UNK
  17. ADRENAL [Concomitant]
     Dosage: 80 MG, UNK
  18. SELENIUM [Concomitant]
     Dosage: 25 MG, UNK

REACTIONS (2)
  - SINUSITIS [None]
  - CONSTIPATION [None]
